FAERS Safety Report 4987697-2 (Version None)
Quarter: 2006Q2

REPORT INFORMATION
  Report Type: 
  Country: None (occurrence: None)
  Receive Date: 20060426
  Receipt Date: 20060407
  Transmission Date: 20061013
  Serious: Yes (Other)
  Sender: FDA-Public Use
  Company Number: AU200512000203

PATIENT
  Age: 69 Year
  Sex: Female

DRUGS (4)
  1. FORTEO [Suspect]
     Dosage: 20 UG, DAILY (1/D),
     Dates: start: 20051021, end: 20051023
  2. FORTEO [Concomitant]
  3. CALTRATE         (CALCIUM CARBONATE) [Concomitant]
  4. LEVOTHYROXINE SODIUM [Concomitant]

REACTIONS (7)
  - BLOOD GASTRIN INCREASED [None]
  - DIZZINESS [None]
  - ERYTHEMA [None]
  - GASTRITIS ATROPHIC [None]
  - HEADACHE [None]
  - NAUSEA [None]
  - SWELLING [None]
